FAERS Safety Report 20728033 (Version 1)
Quarter: 2022Q2

REPORT INFORMATION
  Report Type: Report from Study
  Country: US (occurrence: US)
  Receive Date: 20220420
  Receipt Date: 20220420
  Transmission Date: 20220721
  Serious: Yes (Other)
  Sender: FDA-Public Use
  Company Number: US-BRISTOL-MYERS SQUIBB COMPANY-2022-019929

PATIENT
  Age: 71 Year
  Sex: Male
  Weight: 117 kg

DRUGS (2)
  1. LENALIDOMIDE [Suspect]
     Active Substance: LENALIDOMIDE
     Indication: Plasma cell myeloma
     Dosage: FREQUENCY: 21 DAYS 1 WEEK OFF
     Route: 048
     Dates: start: 20211028
  2. AMOXICILLIN [Concomitant]
     Active Substance: AMOXICILLIN
     Indication: Tooth disorder
     Route: 065

REACTIONS (1)
  - Tooth disorder [Unknown]
